FAERS Safety Report 9624808 (Version 1)
Quarter: 2013Q4

REPORT INFORMATION
  Report Type: Spontaneous
  Country: TR (occurrence: TR)
  Receive Date: 20131015
  Receipt Date: 20131015
  Transmission Date: 20140711
  Serious: Yes (Hospitalization, Other)
  Sender: FDA-Public Use
  Company Number: TR-MYLANLABS-2013S1022699

PATIENT
  Age: 78 Year
  Sex: Female

DRUGS (3)
  1. LITHIUM [Suspect]
     Indication: BIPOLAR DISORDER
     Dosage: 900 MG/DAY
     Route: 065
  2. OLANZAPINE [Suspect]
     Indication: BIPOLAR DISORDER
     Dosage: 20 MG/DAY
     Route: 065
  3. SERTRALINE [Suspect]
     Indication: BIPOLAR DISORDER
     Dosage: 50 MG/DAY
     Route: 065

REACTIONS (2)
  - Toxicity to various agents [Recovered/Resolved with Sequelae]
  - Neurotoxicity [Recovered/Resolved with Sequelae]
